FAERS Safety Report 9936951 (Version 1)
Quarter: 2014Q1

REPORT INFORMATION
  Report Type: Spontaneous
  Country: US (occurrence: None)
  Receive Date: 20140115
  Receipt Date: 20140115
  Transmission Date: 20141002
  Serious: No
  Sender: FDA-Public Use
  Company Number: 2013US002608

PATIENT
  Age: 34 Year
  Sex: Female
  Weight: 181 kg

DRUGS (9)
  1. ICLUSIG [Suspect]
     Indication: CHRONIC MYELOID LEUKAEMIA
     Route: 048
     Dates: start: 20130927
  2. PEPCID (FAMOTIDINE) [Concomitant]
  3. COLACE [Concomitant]
  4. SOMA (CARISOPRODOL) [Concomitant]
  5. OXYCODONE (OXYCODONE) [Concomitant]
  6. THEOPHYLLINE (THEOPHYLLINE) [Concomitant]
  7. GABAPENTIN (GABAPENTIN) [Concomitant]
  8. SINGULAR (MONTELUKAST SODIUM) [Concomitant]
  9. CLARITIN (LORATADINE) [Concomitant]

REACTIONS (2)
  - Cystitis [None]
  - Pain in extremity [None]
